FAERS Safety Report 4357359-3 (Version None)
Quarter: 2004Q2

REPORT INFORMATION
  Report Type: 
  Country: None (occurrence: None)
  Receive Date: 20040513
  Receipt Date: 20040506
  Transmission Date: 20050107
  Serious: Yes (Other)
  Sender: FDA-Public Use
  Company Number: 200413521US

PATIENT
  Sex: 0

DRUGS (1)
  1. LOVENOX [Suspect]
     Dosage: DOSE: 180 SYRINGES OF 60MG

REACTIONS (2)
  - OVERDOSE [None]
  - SUICIDE ATTEMPT [None]
